FAERS Safety Report 10141596 (Version 1)
Quarter: 2014Q2

REPORT INFORMATION
  Report Type: Spontaneous
  Country: SY (occurrence: SY)
  Receive Date: 20140429
  Receipt Date: 20140429
  Transmission Date: 20141212
  Serious: Yes (Hospitalization)
  Sender: FDA-Public Use
  Company Number: SY-GLAXOSMITHKLINE-B0989592A

PATIENT
  Age: 26 Year
  Sex: Female

DRUGS (1)
  1. REVOLADE [Suspect]
     Indication: THROMBOCYTOPENIA
     Dosage: 75MG PER DAY
     Dates: start: 201303, end: 20140422

REACTIONS (1)
  - Exposure during pregnancy [Unknown]
